FAERS Safety Report 8955251 (Version 1)
Quarter: 2012Q4

REPORT INFORMATION
  Report Type: 
  Country: US (occurrence: US)
  Receive Date: 20121207
  Receipt Date: 20121207
  Transmission Date: 20130627
  Serious: No
  Sender: FDA-Public Use
  Company Number: US-009507513-1212USA001197

PATIENT
  Sex: Male
  Weight: 68.27 kg

DRUGS (4)
  1. PEG-INTRON [Suspect]
     Dosage: Inject 96.CG(0.4ml), 120 MCG/0.5 ml
     Route: 058
  2. RIBAPAK [Suspect]
     Dosage: UNK, qd
  3. MAGNESIUM (UNSPECIFIED) [Concomitant]
     Dosage: UNK
  4. AMLODIPINE [Concomitant]
     Dosage: UNK

REACTIONS (3)
  - Fatigue [Unknown]
  - Haemorrhoids [Unknown]
  - Pyrexia [Unknown]
